FAERS Safety Report 9819705 (Version 1)
Quarter: 2014Q1

REPORT INFORMATION
  Report Type: Spontaneous
  Country: US (occurrence: US)
  Receive Date: 20140115
  Receipt Date: 20140115
  Transmission Date: 20141002
  Serious: No
  Sender: FDA-Public Use
  Company Number: US-ALLERGAN-1308110US

PATIENT
  Age: 68 Year
  Sex: Female

DRUGS (7)
  1. PRED FORTE [Suspect]
     Indication: CORNEAL TRANSPLANT
     Dosage: 1 GTT, QD
     Route: 047
  2. PRED FORTE [Suspect]
     Dosage: 4 GTT, QD
     Route: 047
     Dates: start: 201204
  3. PRED FORTE [Suspect]
  4. VITAMINS NOS [Concomitant]
     Indication: NUTRITIONAL SUPPLEMENTATION
     Dosage: UNK
  5. VITAMIN B                          /00056102/ [Concomitant]
     Indication: NUTRITIONAL SUPPLEMENTATION
     Dosage: UNK
  6. FISH OIL [Concomitant]
     Indication: NUTRITIONAL SUPPLEMENTATION
     Dosage: UNK
  7. BABY ASA [Concomitant]
     Indication: FAMILIAL RISK FACTOR
     Dosage: UNK

REACTIONS (4)
  - Foreign body sensation in eyes [Not Recovered/Not Resolved]
  - Dry eye [Not Recovered/Not Resolved]
  - Parosmia [Not Recovered/Not Resolved]
  - Vision blurred [Not Recovered/Not Resolved]
